FAERS Safety Report 9368737 (Version 1)
Quarter: 2013Q2

REPORT INFORMATION
  Report Type: Spontaneous
  Country: FR (occurrence: FR)
  Receive Date: 20130626
  Receipt Date: 20130626
  Transmission Date: 20140414
  Serious: Yes (Life-Threatening, Hospitalization)
  Sender: FDA-Public Use
  Company Number: FR-ASTRAZENECA-2013SE46928

PATIENT
  Age: 2473 Week
  Sex: Male

DRUGS (4)
  1. DIPRIVAN [Suspect]
     Route: 042
     Dates: start: 20121018, end: 20121018
  2. CELOCURINE [Suspect]
     Route: 042
     Dates: start: 20121018, end: 20121018
  3. SUFENTANIL [Suspect]
     Route: 042
     Dates: start: 20121018, end: 20121018
  4. TRACRIUM [Suspect]
     Route: 042
     Dates: start: 20121018, end: 20121018

REACTIONS (3)
  - Shock [Recovered/Resolved]
  - Bronchospasm [Recovered/Resolved]
  - Rash [Recovered/Resolved]
